FAERS Safety Report 7879767-6 (Version None)
Quarter: 2011Q4

REPORT INFORMATION
  Report Type: 
  Country: None (occurrence: None)
  Receive Date: 20111101
  Receipt Date: 20111027
  Transmission Date: 20120403
  Serious: Yes (Death, Hospitalization)
  Sender: FDA-Public Use
  Company Number: FR-ELI_LILLY_AND_COMPANY-FR201108000534

PATIENT
  Sex: Male

DRUGS (14)
  1. DODECAVIT [Concomitant]
     Indication: VITAMIN SUPPLEMENTATION
     Dosage: 0.5 MG/ML, SINGLE DOSE
     Route: 030
     Dates: start: 20110419, end: 20110419
  2. ASPIRIN [Concomitant]
     Indication: MYOCARDIAL ISCHAEMIA
     Dosage: 75 MG, QD
     Route: 048
     Dates: end: 20110505
  3. SOLU-MEDROL [Concomitant]
     Indication: SUPPLEMENTATION THERAPY
     Dosage: 120 MG, UNKNOWN
     Route: 042
     Dates: start: 20110426, end: 20110426
  4. ZOFRAN [Concomitant]
     Indication: PROPHYLAXIS OF NAUSEA AND VOMITING
     Dosage: 8 MG, BID
     Route: 048
     Dates: start: 20110426, end: 20110501
  5. LASIX [Concomitant]
     Dosage: 40 MG, QD
     Route: 048
     Dates: end: 20110524
  6. ALIMTA [Suspect]
     Indication: LUNG NEOPLASM MALIGNANT
     Dosage: 980 MG, UNKNOWN
     Route: 042
     Dates: start: 20110426, end: 20110426
  7. FOLIC ACID [Concomitant]
     Indication: VITAMIN SUPPLEMENTATION
     Dosage: 0.4 MG, QD
     Route: 048
     Dates: start: 20110419, end: 20110511
  8. XANAX [Concomitant]
     Indication: ANXIETY
     Dosage: UNK, QD
     Route: 048
     Dates: start: 20110426, end: 20110507
  9. CARBOPLATIN [Concomitant]
     Indication: LUNG NEOPLASM MALIGNANT
     Dosage: 385 MG, UNKNOWN
     Route: 042
     Dates: start: 20110426, end: 20110426
  10. BISOPROLOL FUMARATE [Concomitant]
     Indication: MYOCARDIAL ISCHAEMIA
     Dosage: 3.75 MG, QD
     Route: 048
     Dates: end: 20110505
  11. PREVISCAN [Concomitant]
     Indication: MYOCARDIAL ISCHAEMIA
     Dosage: UNK
     Route: 048
     Dates: end: 20110505
  12. TRANDOLAPRIL [Concomitant]
     Indication: MYOCARDIAL ISCHAEMIA
     Dosage: 4 MG, QD
     Route: 048
     Dates: end: 20110505
  13. PREDNISOLONE [Concomitant]
     Indication: PREMEDICATION
     Dosage: 20 MG, TID
     Route: 048
     Dates: start: 20110426, end: 20110427
  14. ATORVASTATIN CALCIUM [Concomitant]
     Indication: MYOCARDIAL ISCHAEMIA
     Dosage: UNK, QD
     Route: 048

REACTIONS (11)
  - DIARRHOEA [None]
  - INTUSSUSCEPTION [None]
  - CANDIDIASIS [None]
  - HEPATIC CIRRHOSIS [None]
  - HEPATORENAL SYNDROME [None]
  - GENERAL PHYSICAL HEALTH DETERIORATION [None]
  - GASTROINTESTINAL NECROSIS [None]
  - PANCYTOPENIA [None]
  - ESCHERICHIA INFECTION [None]
  - LUNG DISORDER [None]
  - HYPERKALAEMIA [None]
